FAERS Safety Report 7412323-2 (Version None)
Quarter: 2011Q2

REPORT INFORMATION
  Report Type: 
  Country: None (occurrence: None)
  Receive Date: 20110413
  Receipt Date: 20110407
  Transmission Date: 20111010
  Serious: Yes (Hospitalization)
  Sender: FDA-Public Use
  Company Number: KR-ROCHE-766431

PATIENT
  Age: 63 Year
  Sex: Male

DRUGS (5)
  1. PEG-INTRON [Suspect]
     Dosage: REPORTED AS HYPODERMIC INJECTION
     Route: 065
  2. LOSARTAN [Concomitant]
  3. COLCHICINE [Concomitant]
  4. RIBAVIRIN [Suspect]
     Route: 048
  5. ALLOPURINOL [Concomitant]

REACTIONS (6)
  - DYSPNOEA EXERTIONAL [None]
  - ASTHENIA [None]
  - INTERSTITIAL LUNG DISEASE [None]
  - STOMATITIS [None]
  - PANCYTOPENIA [None]
  - DIARRHOEA [None]
